FAERS Safety Report 7362212-7 (Version None)
Quarter: 2011Q1

REPORT INFORMATION
  Report Type: 
  Country: None (occurrence: None)
  Receive Date: 20110315
  Receipt Date: 20110315
  Transmission Date: 20110831
  Serious: Yes (Other)
  Sender: FDA-Public Use
  Company Number: None

PATIENT
  Sex: Female

DRUGS (1)
  1. LOPRESSOR [Suspect]
     Indication: TACHYCARDIA
     Dosage: LOPRESSOR 50MG TID ORAL
     Route: 048
     Dates: start: 20040101

REACTIONS (1)
  - TACHYCARDIA [None]
